FAERS Safety Report 5154594-1 (Version None)
Quarter: 2006Q4

REPORT INFORMATION
  Report Type: 
  Country: None (occurrence: None)
  Receive Date: 20061114
  Receipt Date: 20061027
  Transmission Date: 20070319
  Serious: Yes (Hospitalization)
  Sender: FDA-Public Use
  Company Number: 2006BL006272

PATIENT
  Age: 65 Year
  Sex: 0

DRUGS (5)
  1. PREDNISOLONE SODIUM PHOSPHATE [Suspect]
     Indication: DRUG USE FOR UNKNOWN INDICATION
     Dosage: 40 MILLIGRAMS; DAILY; ORAL
     Route: 048
  2. ASPIRIN [Suspect]
     Indication: ANTIPLATELET THERAPY
     Dosage: 75 MILLIGRAMS; DAILY; ORAL
     Route: 048
  3. ENOXAPARIN SODIUM [Suspect]
     Dosage: 40 MILLIGRAMS; DAILY; SUBCUTANEOUS
     Route: 058
  4. CLOPIDOGREL [Suspect]
     Dosage: 75 MILLIGRAMS; ORAL
     Route: 048
  5. IBUPROFEN [Suspect]
     Dosage: 400 MILLIGRAMS; 3 TIMES A DAY; ORAL
     Route: 048

REACTIONS (2)
  - GASTROINTESTINAL HAEMORRHAGE [None]
  - HELICOBACTER INFECTION [None]
